FAERS Safety Report 10197001 (Version 1)
Quarter: 2014Q2

REPORT INFORMATION
  Report Type: Report from Study
  Country: JP (occurrence: JP)
  Receive Date: 20140527
  Receipt Date: 20140527
  Transmission Date: 20141212
  Serious: Yes (Death, Hospitalization)
  Sender: FDA-Public Use
  Company Number: JP-B.I. PHARMACEUTICALS,INC./RIDGEFIELD-2014-BI-23019NB

PATIENT
  Age: 72 Year
  Sex: Male
  Weight: 53.8 kg

DRUGS (5)
  1. PRAZAXA [Suspect]
     Indication: CEREBROVASCULAR ACCIDENT PROPHYLAXIS
     Dosage: 220 MG
     Route: 048
     Dates: start: 20130920, end: 20140514
  2. MAINTATE [Concomitant]
     Dosage: 1.25 MG
     Route: 048
  3. BEPRICOR [Concomitant]
     Dosage: 50 MG
     Route: 048
  4. METHYCOBAL [Concomitant]
     Dosage: 1500 MCG
     Route: 048
     Dates: end: 20140426
  5. MEDICON [Concomitant]
     Dosage: 30 MG
     Route: 048
     Dates: end: 20140425

REACTIONS (2)
  - Dyspnoea [Fatal]
  - Squamous cell carcinoma of lung [Fatal]
